FAERS Safety Report 14974296 (Version 1)
Quarter: 2018Q2

REPORT INFORMATION
  Report Type: Spontaneous
  Country: JP (occurrence: JP)
  Receive Date: 20180605
  Receipt Date: 20180605
  Transmission Date: 20180711
  Serious: Yes (Life-Threatening, Hospitalization)
  Sender: FDA-Public Use
  Company Number: JP-MYLANLABS-2018M1037657

PATIENT
  Age: 76 Year
  Sex: Female

DRUGS (3)
  1. BEVACIZUMAB. [Concomitant]
     Active Substance: BEVACIZUMAB
     Indication: COLON CANCER STAGE III
     Route: 065
  2. OXALIPLATIN. [Suspect]
     Active Substance: OXALIPLATIN
     Indication: COLON CANCER STAGE III
     Route: 065
  3. XELOX [Concomitant]
     Active Substance: CAPECITABINE\OXALIPLATIN
     Indication: COLON CANCER STAGE III
     Dosage: 1500 G/M2/DAY
     Route: 065

REACTIONS (3)
  - Cardio-respiratory arrest [Recovering/Resolving]
  - Loss of consciousness [Recovered/Resolved]
  - Anaphylactic shock [Recovering/Resolving]
